FAERS Safety Report 6348368-3 (Version None)
Quarter: 2009Q3

REPORT INFORMATION
  Report Type: 
  Country: None (occurrence: None)
  Receive Date: 20090908
  Receipt Date: 20090901
  Transmission Date: 20100115
  Serious: Yes (Other)
  Sender: FDA-Public Use
  Company Number: 0909-SPO-VANT-0112

PATIENT
  Age: 70 Year
  Sex: Male
  Weight: 101.6057 kg

DRUGS (6)
  1. VANTAS [Suspect]
     Indication: PROSTATE CANCER
     Dosage: 1 IN 1 Y, SUB Q. IMPLANT
     Dates: start: 20090615
  2. DILANTIN (PHENYTOIN) (100 MILLIGRAM) [Concomitant]
  3. ASPIRIN [Concomitant]
  4. AVAPRO (IRBESARTAN) (150 MILLIGRAM) [Concomitant]
  5. PLAVIX [Concomitant]
  6. ADVIL [Concomitant]

REACTIONS (2)
  - FALL [None]
  - GAIT DISTURBANCE [None]
